FAERS Safety Report 12856267 (Version 1)
Quarter: 2016Q4

REPORT INFORMATION
  Report Type: Spontaneous
  Country: SA (occurrence: SA)
  Receive Date: 20161018
  Receipt Date: 20161018
  Transmission Date: 20170207
  Serious: Yes (Hospitalization)
  Sender: FDA-Public Use
  Company Number: SA-ASTRAZENECA-2016SF07962

PATIENT
  Age: 51 Year
  Sex: Male

DRUGS (7)
  1. KOMBIGLYZE XR [Suspect]
     Active Substance: METFORMIN HYDROCHLORIDE\SAXAGLIPTIN HYDROCHLORIDE
     Indication: DIABETES MELLITUS
     Dosage: KOMBIG 1000/2.5
     Route: 048
  2. COZAAR [Concomitant]
     Active Substance: LOSARTAN POTASSIUM
  3. ZOKOR [Concomitant]
  4. LIPANTHYL [Concomitant]
     Active Substance: FENOFIBRATE
  5. DIMICRON [Concomitant]
  6. PLAVIX [Concomitant]
     Active Substance: CLOPIDOGREL BISULFATE
  7. NATRILIX [Concomitant]
     Active Substance: INDAPAMIDE

REACTIONS (1)
  - Encephalopathy [Unknown]
